FAERS Safety Report 21509345 (Version 1)
Quarter: 2022Q4

REPORT INFORMATION
  Report Type: Spontaneous
  Country: US (occurrence: US)
  Receive Date: 20221026
  Receipt Date: 20221026
  Transmission Date: 20230113
  Serious: No
  Sender: FDA-Public Use
  Company Number: US-BRISTOL-MYERS SQUIBB COMPANY-2022-127143

PATIENT
  Age: 95 Year
  Sex: Female
  Weight: 69.85 kg

DRUGS (1)
  1. REVLIMID [Suspect]
     Active Substance: LENALIDOMIDE
     Indication: Pancytopenia
     Dosage: FREQUENCY-21D ON 7D OFF
     Route: 048

REACTIONS (2)
  - White blood cell count decreased [Unknown]
  - Intentional product use issue [Unknown]
